FAERS Safety Report 4457584-7 (Version None)
Quarter: 2004Q3

REPORT INFORMATION
  Report Type: 
  Country: None (occurrence: None)
  Receive Date: 20040902
  Receipt Date: 20040519
  Transmission Date: 20050211
  Serious: No
  Sender: FDA-Public Use
  Company Number: 200410978BWH

PATIENT
  Age: 65 Year
  Sex: Female
  Weight: 88.4514 kg

DRUGS (5)
  1. LEVITRA [Suspect]
     Indication: ERECTILE DYSFUNCTION
     Dosage: SEE IMAGE, ORAL
     Route: 048
     Dates: start: 20040101
  2. LEVITRA [Suspect]
     Indication: ERECTILE DYSFUNCTION
     Dosage: SEE IMAGE, ORAL
     Route: 048
     Dates: start: 20040101
  3. VIAGRA [Concomitant]
  4. BLOOD PRESSURE MEDICINE [Concomitant]
  5. COMMON COLD MEDICINE [Concomitant]

REACTIONS (2)
  - ERECTILE DYSFUNCTION [None]
  - UNEVALUABLE EVENT [None]
